FAERS Safety Report 9352072 (Version 2)
Quarter: 2013Q3

REPORT INFORMATION
  Report Type: Report from Study
  Country: SK (occurrence: SK)
  Receive Date: 20130617
  Receipt Date: 20130903
  Transmission Date: 20140515
  Serious: Yes (Death, Hospitalization)
  Sender: FDA-Public Use
  Company Number: PHHO2011SK08375

PATIENT
  Age: 67 Year
  Sex: Male
  Weight: 104 kg

DRUGS (36)
  1. HYDROCHLOROTHIAZIDE [Suspect]
  2. FUROSEMIDE [Suspect]
     Indication: CORONARY ARTERY DISEASE
     Dosage: 125 MG,
     Route: 048
     Dates: start: 20111224
  3. FUROSEMIDE [Suspect]
     Indication: HYPERTENSION
  4. ALISKIREN [Suspect]
     Indication: CARDIOVASCULAR DISORDER
     Route: 048
     Dates: start: 20081104, end: 20111221
  5. ACTIFEDRIN [Concomitant]
     Indication: ANAEMIA
     Route: 048
     Dates: start: 20080823
  6. KAMIREN XL [Concomitant]
     Indication: BENIGN PROSTATIC HYPERPLASIA
     Dosage: 4 MG,
     Route: 048
     Dates: start: 20100720
  7. ATROVENT [Concomitant]
     Indication: CHRONIC OBSTRUCTIVE PULMONARY DISEASE
     Dosage: 600 MG,
     Route: 048
     Dates: start: 20070606
  8. ATROVENT [Concomitant]
     Dosage: 600 MG,
     Dates: start: 20110406
  9. GLUCOVANCE [Concomitant]
     Indication: TYPE 2 DIABETES MELLITUS
     Dosage: 1000/20 MG,
     Route: 048
     Dates: start: 20070606
  10. LANTUS [Concomitant]
     Indication: TYPE 2 DIABETES MELLITUS
     Route: 042
     Dates: start: 20070925
  11. LANTUS [Concomitant]
     Dosage: 28 IU,
     Route: 058
     Dates: start: 20070925
  12. TULIP [Concomitant]
     Indication: DYSLIPIDAEMIA
     Dosage: 20 MG,
     Route: 048
     Dates: start: 20070606
  13. MICARDISPLUS [Concomitant]
     Indication: HYPERTENSION
     Dosage: 80/25 MG
     Route: 048
     Dates: start: 20090602, end: 20111019
  14. MICARDISPLUS [Concomitant]
     Indication: CORONARY ARTERY DISEASE
     Dosage: 80/12.5 MG
     Route: 048
     Dates: start: 20120221
  15. SIOFOR [Concomitant]
     Indication: TYPE 2 DIABETES MELLITUS
     Dosage: 1700 MG,
     Route: 048
     Dates: start: 20111125
  16. SORTIS [Concomitant]
     Indication: DYSLIPIDAEMIA
     Dosage: 80 MG,
     Route: 048
     Dates: start: 20070606
  17. CONCOR COR [Concomitant]
     Indication: HYPERTENSION
     Dosage: 5 MG,
     Route: 048
     Dates: start: 20111113, end: 20120602
  18. CONCOR COR [Concomitant]
     Indication: CORONARY ARTERY DISEASE
  19. TRITACE [Concomitant]
     Indication: HYPERTENSION
     Dosage: 5 MG,
     Route: 048
     Dates: start: 20111113, end: 20120212
  20. GLICLADA [Concomitant]
     Indication: TYPE 2 DIABETES MELLITUS
     Dosage: 120 MG,
     Route: 048
     Dates: start: 20111125
  21. CORVO [Concomitant]
     Indication: HYPERTENSION
     Dosage: 12.5 MG,
     Route: 048
     Dates: start: 20091116, end: 20111019
  22. VESSEL DUE F [Concomitant]
     Indication: DIABETIC RETINOPATHY
     Dosage: 250 MG,
     Route: 048
     Dates: start: 20080620
  23. VESSEL DUE F [Concomitant]
     Indication: DIABETIC VASCULAR DISORDER
  24. THIOGAMMA [Concomitant]
     Indication: DIABETIC NEUROPATHY
     Dosage: 600 MG,
     Route: 048
     Dates: start: 20070606
  25. LUSOPRESS [Concomitant]
     Indication: HYPERTENSION
     Dosage: 20 MG, UNK
     Route: 048
     Dates: start: 20080602
  26. CARDILOPIN [Concomitant]
     Indication: HYPERTENSION
     Dosage: 5 MG, UNK
     Route: 048
     Dates: start: 20110520, end: 20120602
  27. TENAXUM [Concomitant]
     Indication: HYPERTENSION
     Dosage: 10 MG, UNK
     Route: 048
     Dates: start: 20091202
  28. FURON [Concomitant]
     Indication: HYPERTENSION
     Dosage: 40 MG, UNK
     Route: 048
     Dates: start: 20111019, end: 20111028
  29. CORVATON [Concomitant]
     Indication: CORONARY ARTERY DISEASE
     Dosage: 8 MG, BID
     Route: 048
     Dates: start: 20110520, end: 20120705
  30. CORYOL [Concomitant]
     Indication: HYPERTENSION
     Dosage: 12.5 MG, UNK
     Route: 048
     Dates: start: 20091116
  31. CORYOL [Concomitant]
     Indication: CORONARY ARTERY DISEASE
  32. AMLODIPIN ^ORIFARM^ [Concomitant]
     Indication: HYPERTENSION
     Dosage: 75 MG, UNK
     Route: 048
     Dates: start: 20120604
  33. NEBILET [Concomitant]
     Indication: ARTERIAL DISORDER
     Dosage: 2.5 MG, UNK
     Route: 048
     Dates: start: 20120603
  34. NEBILET [Concomitant]
     Indication: HYPERTENSION
  35. EBRANTIL [Concomitant]
     Indication: HYPERTENSION
     Dosage: 60 MG, UNK
     Route: 048
     Dates: start: 20120604
  36. INSPRA [Concomitant]
     Indication: CORONARY ARTERY DISEASE
     Dosage: 75 MG, UNK
     Route: 048
     Dates: start: 20120606

REACTIONS (11)
  - Dehydration [Recovering/Resolving]
  - Cardiac failure congestive [Fatal]
  - Coronary artery disease [Fatal]
  - Chronic obstructive pulmonary disease [Fatal]
  - Myocardial infarction [Recovered/Resolved]
  - Bronchopneumonia [Unknown]
  - Anaemia [Recovering/Resolving]
  - Circulatory collapse [Recovering/Resolving]
  - Intestinal polyp [Not Recovered/Not Resolved]
  - Dyspnoea [Recovered/Resolved]
  - Concomitant disease progression [Recovering/Resolving]
